FAERS Safety Report 5506957-X (Version None)
Quarter: 2007Q4

REPORT INFORMATION
  Report Type: 
  Country: None (occurrence: None)
  Receive Date: 20071105
  Receipt Date: 20071026
  Transmission Date: 20080405
  Serious: Yes (Hospitalization)
  Sender: FDA-Public Use
  Company Number: BR-ABBOTT-07P-020-0418907-00

PATIENT
  Sex: Female
  Weight: 50 kg

DRUGS (15)
  1. HUMIRA [Suspect]
     Indication: RHEUMATOID ARTHRITIS
     Route: 058
     Dates: start: 20070801
  2. NIMESULIDE [Concomitant]
     Indication: DRUG USE FOR UNKNOWN INDICATION
     Route: 048
  3. PREDNISONE TAB [Concomitant]
     Indication: DRUG USE FOR UNKNOWN INDICATION
     Route: 048
  4. OMEPRAZOLE [Concomitant]
     Indication: DRUG USE FOR UNKNOWN INDICATION
     Route: 048
  5. PANTOPRAZOLE SODIUM [Concomitant]
     Indication: DRUG USE FOR UNKNOWN INDICATION
     Route: 048
  6. PREDNISONE TAB [Concomitant]
     Indication: RHEUMATOID ARTHRITIS
     Route: 048
  7. PREDNISONE TAB [Concomitant]
     Route: 048
  8. TRAMADOL HCL [Concomitant]
     Indication: ANALGESIA
  9. TENOXICAM [Concomitant]
     Indication: ANTIINFLAMMATORY THERAPY
  10. LUMIRACOXIB [Concomitant]
     Indication: ANTIINFLAMMATORY THERAPY
  11. VALDECOXIB [Concomitant]
     Indication: ANTIINFLAMMATORY THERAPY
  12. ETORICOXIB [Concomitant]
     Indication: ANTIINFLAMMATORY THERAPY
  13. AMITRIPTYLINE HCL [Concomitant]
     Indication: DRUG USE FOR UNKNOWN INDICATION
  14. AMITRIPTYLINE HCL [Concomitant]
  15. GABAPENTIN [Concomitant]
     Indication: DRUG USE FOR UNKNOWN INDICATION

REACTIONS (11)
  - BACK PAIN [None]
  - INTERVERTEBRAL DISC PROTRUSION [None]
  - LUNG INFECTION [None]
  - MUSCULAR WEAKNESS [None]
  - NAUSEA [None]
  - NERVE COMPRESSION [None]
  - PARAESTHESIA [None]
  - SINUSITIS [None]
  - SPINAL DISORDER [None]
  - URINARY TRACT INFECTION [None]
  - VOMITING [None]
